FAERS Safety Report 15602691 (Version 2)
Quarter: 2019Q1

REPORT INFORMATION
  Report Type: Spontaneous
  Country: US (occurrence: US)
  Receive Date: 20181109
  Receipt Date: 20190205
  Transmission Date: 20190417
  Serious: Yes (Other)
  Sender: FDA-Public Use
  Company Number: US-SA-2018SA308275

PATIENT
  Age: 51 Year
  Sex: Female
  Weight: 61 kg

DRUGS (23)
  1. TAXOTERE [Suspect]
     Active Substance: DOCETAXEL
     Dosage: 86 MG, Q3W
     Route: 042
     Dates: start: 20160111, end: 20160111
  2. REFRESH PM [PARAFFIN, LIQUID;WHITE SOFT PARAFFIN;WOOL ALCOHOLS] [Concomitant]
  3. CATAPRES [Concomitant]
     Active Substance: CLONIDINE HYDROCHLORIDE
  4. ARMOUR THYROID [Concomitant]
     Active Substance: THYROID, PORCINE
  5. TAXOTERE [Suspect]
     Active Substance: DOCETAXEL
     Indication: BREAST CANCER FEMALE
     Dosage: 128 MG, Q3W
     Route: 042
     Dates: start: 20150828, end: 20150828
  6. TYLENOL [Concomitant]
     Active Substance: ACETAMINOPHEN
  7. LOTEMAX [Concomitant]
     Active Substance: LOTEPREDNOL ETABONATE
  8. MAXALT [Concomitant]
     Active Substance: RIZATRIPTAN BENZOATE
  9. HERCEPTIN [Concomitant]
     Active Substance: TRASTUZUMAB
  10. ZOFRAN [Concomitant]
     Active Substance: ONDANSETRON HYDROCHLORIDE
  11. INDERAL [Concomitant]
     Active Substance: PROPRANOLOL HYDROCHLORIDE
  12. PHENERGAN [Concomitant]
     Active Substance: PROMETHAZINE HYDROCHLORIDE
  13. REFRESH PLUS [Concomitant]
     Active Substance: CARBOXYMETHYLCELLULOSE SODIUM
  14. TAXOTERE [Suspect]
     Active Substance: DOCETAXEL
     Dosage: 102 MG, Q3W
     Route: 042
  15. PARAPLATIN [Concomitant]
     Active Substance: CARBOPLATIN
  16. COMPAZINE [Concomitant]
     Active Substance: PROCHLORPERAZINE MALEATE
  17. AMBIEN [Concomitant]
     Active Substance: ZOLPIDEM TARTRATE
  18. LOTENSIN [BENAZEPRIL HYDROCHLORIDE] [Concomitant]
  19. NEURONTIN [Concomitant]
     Active Substance: GABAPENTIN
  20. TOPAMAX [Concomitant]
     Active Substance: TOPIRAMATE
  21. MELATONIN [Concomitant]
     Active Substance: MELATONIN
  22. TAMOXIFEN [Concomitant]
     Active Substance: TAMOXIFEN
  23. TOBRADEX [Concomitant]
     Active Substance: DEXAMETHASONE\TOBRAMYCIN

REACTIONS (2)
  - Alopecia [Recovering/Resolving]
  - Psychological trauma [Unknown]

NARRATIVE: CASE EVENT DATE: 20161220
